FAERS Safety Report 5450948-4 (Version None)
Quarter: 2007Q3

REPORT INFORMATION
  Report Type: 
  Country: None (occurrence: None)
  Receive Date: 20070911
  Receipt Date: 20070911
  Transmission Date: 20080115
  Serious: Yes (Other)
  Sender: FDA-Public Use
  Company Number: None

PATIENT
  Sex: Female
  Weight: 53.978 kg

DRUGS (3)
  1. PHENYTOIN SODIUM [Suspect]
     Indication: CONVULSION
     Dosage: 100 QD PO
     Route: 048
     Dates: start: 20070901, end: 20070902
  2. DILANTIN [Concomitant]
  3. KEPPRA [Concomitant]

REACTIONS (2)
  - CONVULSION [None]
  - MEDICATION ERROR [None]
